FAERS Safety Report 18209062 (Version 1)
Quarter: 2020Q3

REPORT INFORMATION
  Report Type: Spontaneous
  Country: DE (occurrence: DE)
  Receive Date: 20200828
  Receipt Date: 20200828
  Transmission Date: 20201103
  Serious: Yes (Other)
  Sender: FDA-Public Use
  Company Number: NVSC2020DE235552

PATIENT
  Sex: Female

DRUGS (1)
  1. ZOMETA [Suspect]
     Active Substance: ZOLEDRONIC ACID
     Indication: PRODUCT USED FOR UNKNOWN INDICATION
     Dosage: UNK
     Route: 041
     Dates: start: 201905

REACTIONS (4)
  - Plasmacytoma [Unknown]
  - Fractured sacrum [Unknown]
  - Incorrect product administration duration [Unknown]
  - Rib fracture [Unknown]

NARRATIVE: CASE EVENT DATE: 2019
